FAERS Safety Report 5815908-X (Version None)
Quarter: 2008Q3

REPORT INFORMATION
  Report Type: 
  Country: None (occurrence: None)
  Receive Date: 20080716
  Receipt Date: 20080115
  Transmission Date: 20090109
  Serious: Yes (Other)
  Sender: FDA-Public Use
  Company Number: 2008-170600-NL

PATIENT
  Age: 74 Year
  Sex: Male

DRUGS (1)
  1. REMERON [Suspect]

REACTIONS (5)
  - DIZZINESS [None]
  - FEELING DRUNK [None]
  - HYPOAESTHESIA [None]
  - HYPOKINESIA [None]
  - PARAESTHESIA [None]
